FAERS Safety Report 13991966 (Version 1)
Quarter: 2017Q3

REPORT INFORMATION
  Report Type: Spontaneous
  Country: US (occurrence: US)
  Receive Date: 20170920
  Receipt Date: 20170920
  Transmission Date: 20171128
  Serious: No
  Sender: FDA-Public Use
  Company Number: US-JNJFOC-20170707551

PATIENT
  Age: 53 Year
  Sex: Female

DRUGS (12)
  1. MELATONIN [Concomitant]
     Active Substance: MELATONIN
     Route: 065
  2. GABAPENTIN. [Concomitant]
     Active Substance: GABAPENTIN
     Route: 065
  3. LYSINE [Concomitant]
     Active Substance: LYSINE
     Route: 065
  4. ONDANSETRON HCL [Concomitant]
     Active Substance: ONDANSETRON HYDROCHLORIDE
     Route: 065
  5. LEVOTHYROXINE SODIUM. [Concomitant]
     Active Substance: LEVOTHYROXINE SODIUM
     Route: 065
  6. ESZOPICLONE. [Concomitant]
     Active Substance: ESZOPICLONE
     Route: 065
  7. PROGESTERONE. [Concomitant]
     Active Substance: PROGESTERONE
     Route: 065
  8. DULOXETINE HCL [Concomitant]
     Active Substance: DULOXETINE HYDROCHLORIDE
     Route: 065
  9. MINIVELLE [Concomitant]
     Active Substance: ESTRADIOL
     Route: 065
  10. TROSPIUM CHLORIDE. [Concomitant]
     Active Substance: TROSPIUM CHLORIDE
     Route: 065
  11. STELARA [Suspect]
     Active Substance: USTEKINUMAB
     Indication: CROHN^S DISEASE
     Route: 058
  12. ESTRADIOL. [Concomitant]
     Active Substance: ESTRADIOL
     Route: 065

REACTIONS (2)
  - Pain in extremity [Unknown]
  - Nausea [Unknown]
